FAERS Safety Report 9224023 (Version 2)
Quarter: 2013Q2

REPORT INFORMATION
  Report Type: Spontaneous
  Country: US (occurrence: US)
  Receive Date: 20130411
  Receipt Date: 20130423
  Transmission Date: 20140414
  Serious: No
  Sender: FDA-Public Use
  Company Number: US-BIOGENIDEC-2013BI031498

PATIENT
  Sex: Female

DRUGS (2)
  1. TYSABRI [Suspect]
     Indication: MULTIPLE SCLEROSIS
     Route: 042
     Dates: start: 20080514, end: 20081105
  2. TYSABRI [Suspect]
     Indication: MULTIPLE SCLEROSIS
     Route: 042
     Dates: start: 20120418

REACTIONS (6)
  - Fear of animals [Not Recovered/Not Resolved]
  - Allergy to animal [Not Recovered/Not Resolved]
  - Phobia [Not Recovered/Not Resolved]
  - Poor venous access [Not Recovered/Not Resolved]
  - Local swelling [Unknown]
  - Hypotension [Recovered/Resolved]
